FAERS Safety Report 18889219 (Version 1)
Quarter: 2021Q1

REPORT INFORMATION
  Report Type: Spontaneous
  Country: AU (occurrence: AU)
  Receive Date: 20210213
  Receipt Date: 20210213
  Transmission Date: 20210420
  Serious: Yes (Death, Hospitalization, Other)
  Sender: FDA-Public Use
  Company Number: AU-LEADINGPHARMA-AU-2021LEALIT00054

PATIENT
  Sex: Male

DRUGS (5)
  1. BENZTROPINE MESYLATE TABLETS USP [Suspect]
     Active Substance: BENZTROPINE MESYLATE
     Indication: SCHIZOPHRENIA
     Route: 065
  2. OLANZAPINE. [Suspect]
     Active Substance: OLANZAPINE
     Indication: SCHIZOPHRENIA
     Route: 065
  3. SENNOSIDE A [Interacting]
     Active Substance: SENNOSIDE A
     Route: 065
  4. BENZTROPINE MESYLATE TABLETS USP [Suspect]
     Active Substance: BENZTROPINE MESYLATE
     Route: 065
  5. DOCUSATE [Interacting]
     Active Substance: DOCUSATE
     Route: 065

REACTIONS (7)
  - Faecaloma [Unknown]
  - Constipation [Unknown]
  - Drug interaction [Unknown]
  - Multiple organ dysfunction syndrome [Fatal]
  - Small intestinal obstruction [Unknown]
  - Pneumonia aspiration [Unknown]
  - Acute kidney injury [Unknown]
